FAERS Safety Report 11117864 (Version 2)
Quarter: 2015Q2

REPORT INFORMATION
  Report Type: Spontaneous
  Country: CL (occurrence: CL)
  Receive Date: 20150518
  Receipt Date: 20150602
  Transmission Date: 20150821
  Serious: Yes (Other)
  Sender: FDA-Public Use
  Company Number: CL-SUN PHARMACEUTICAL INDUSTRIES LTD-2015RR-97309

PATIENT
  Age: 58 Year
  Sex: Male

DRUGS (4)
  1. IMATINIB [Suspect]
     Active Substance: IMATINIB
     Indication: CHRONIC EOSINOPHILIC LEUKAEMIA
     Dosage: 100 MG, DAILY
     Route: 065
  2. IMATINIB [Concomitant]
     Active Substance: IMATINIB
     Indication: CHRONIC EOSINOPHILIC LEUKAEMIA
     Dosage: 400 MG, 1/WEEK
     Route: 065
  3. PREDNISONE. [Suspect]
     Active Substance: PREDNISONE
     Indication: CHRONIC EOSINOPHILIC LEUKAEMIA
     Dosage: 40 MG, DAILY
     Route: 065
  4. HYDROXYUREA. [Suspect]
     Active Substance: HYDROXYUREA
     Indication: CHRONIC EOSINOPHILIC LEUKAEMIA
     Dosage: 1.5 G, DAILY
     Route: 065

REACTIONS (2)
  - Drug effect incomplete [Unknown]
  - Anaemia [Recovered/Resolved]
